FAERS Safety Report 20974953 (Version 1)
Quarter: 2022Q2

REPORT INFORMATION
  Report Type: Other
  Country: JP (occurrence: None)
  Receive Date: 20220617
  Receipt Date: 20220617
  Transmission Date: 20220721
  Serious: Yes (Hospitalization, Other)
  Sender: FDA-Public Use
  Company Number: JP-ROCHE-3117805

PATIENT
  Age: 69 Year
  Sex: Male
  Weight: 50 kg

DRUGS (7)
  1. RITUXIMAB [Suspect]
     Active Substance: RITUXIMAB
     Indication: Diffuse large B-cell lymphoma
     Route: 041
  2. POLATUZUMAB VEDOTIN [Suspect]
     Active Substance: POLATUZUMAB VEDOTIN
     Indication: Diffuse large B-cell lymphoma
     Dosage: RECEIVED SUBSEQUENT ONE TIME DOSE OF POLATUZUMAB VEDOTIN ON 05-AUG-2021, 02-SEP-2021, 29-SEP-2021 AN
     Route: 042
     Dates: start: 20210709, end: 20210709
  3. BENDAMUSTINE HYDROCHLORIDE [Concomitant]
     Active Substance: BENDAMUSTINE HYDROCHLORIDE
     Indication: Diffuse large B-cell lymphoma refractory
     Route: 042
     Dates: start: 20210709, end: 20211020
  4. SULFAMETHOXAZOLE\TRIMETHOPRIM [Concomitant]
     Active Substance: SULFAMETHOXAZOLE\TRIMETHOPRIM
     Indication: Infection prophylaxis
     Route: 048
     Dates: end: 20210930
  5. VFEND [Concomitant]
     Active Substance: VORICONAZOLE
     Indication: Infection prophylaxis
     Route: 065
  6. CEFEPIME HYDROCHLORIDE [Concomitant]
     Active Substance: CEFEPIME HYDROCHLORIDE
     Route: 041
  7. AMPICILLIN SODIUM\SULBACTAM SODIUM [Concomitant]
     Active Substance: AMPICILLIN SODIUM\SULBACTAM SODIUM
     Route: 041

REACTIONS (4)
  - Urinary tract infection [Recovering/Resolving]
  - Hydronephrosis [Recovering/Resolving]
  - Sepsis [Recovering/Resolving]
  - Renal impairment [Recovering/Resolving]

NARRATIVE: CASE EVENT DATE: 20210722
